FAERS Safety Report 8511820-6 (Version None)
Quarter: 2012Q3

REPORT INFORMATION
  Report Type: 
  Country: None (occurrence: None)
  Receive Date: 20120711
  Receipt Date: 20120711
  Transmission Date: 20120928
  Serious: Yes (Other)
  Sender: FDA-Public Use
  Company Number: None

PATIENT
  Sex: Male
  Weight: 75.2 kg

DRUGS (11)
  1. NAFCILLIN [Suspect]
  2. CEFTAROLINE [Concomitant]
  3. REGULAR INSULIN [Concomitant]
  4. ALPRAZOLAM [Concomitant]
  5. AMIODARONE HCL [Concomitant]
  6. CARVEDILOL [Concomitant]
  7. ASPIRIN [Concomitant]
  8. FUROSEMIDE [Concomitant]
  9. NAFCILLIN [Suspect]
     Indication: ENDOCARDITIS
     Dosage: 2G EVERY 4 HOURS IV
     Route: 042
     Dates: start: 20120420, end: 20120521
  10. SIMVASTATIN [Concomitant]
  11. ERGOCALCIFEROL [Concomitant]

REACTIONS (1)
  - BLOOD POTASSIUM DECREASED [None]
